FAERS Safety Report 9007196 (Version 4)
Quarter: 2013Q2

REPORT INFORMATION
  Report Type: Report from Study
  Country: US (occurrence: US)
  Receive Date: 20130110
  Receipt Date: 20130603
  Transmission Date: 20140414
  Serious: Yes (Other)
  Sender: FDA-Public Use
  Company Number: US-VERTEX PHARMACEUTICALS INC.-2013-000437

PATIENT
  Age: 63 Year
  Sex: Male

DRUGS (15)
  1. VX-950 (TELAPREVIR) [Suspect]
     Indication: HEPATITIS C
     Dosage: 750 MG, TID
     Route: 048
     Dates: start: 20120924, end: 20121126
  2. RIBAVIRIN [Suspect]
     Indication: HEPATITIS C
     Dosage: 600 MG, BID
     Route: 048
     Dates: start: 20120924
  3. RIBAVIRIN [Suspect]
     Dosage: UNK
     Dates: start: 20121025
  4. PEGASYS [Suspect]
     Indication: HEPATITIS C
     Dosage: 180 ?G, QW
     Route: 058
     Dates: start: 20120924, end: 20121203
  5. BUPROPION HCL ER [Concomitant]
     Dosage: 200 MG, BID
  6. LEXAPRO [Concomitant]
     Dosage: 20 MG, QD
  7. LOSARTAN [Concomitant]
     Dosage: 50 MG, QD
  8. METOPROLOL [Concomitant]
  9. ZOFRAN [Concomitant]
  10. PROTONIX [Concomitant]
  11. PROMETHAZINE [Concomitant]
  12. PROPRANOLOL [Concomitant]
  13. TAMSULOSIN [Concomitant]
  14. TRAZODONE [Concomitant]
  15. XIFAXAN [Concomitant]

REACTIONS (5)
  - Anaemia [Recovered/Resolved]
  - White blood cell count decreased [Not Recovered/Not Resolved]
  - Pertussis [Not Recovered/Not Resolved]
  - Feeling abnormal [Unknown]
  - Platelet count decreased [Not Recovered/Not Resolved]
